FAERS Safety Report 18301799 (Version 1)
Quarter: 2020Q3

REPORT INFORMATION
  Report Type: Spontaneous
  Country: FI (occurrence: FI)
  Receive Date: 20200923
  Receipt Date: 20200923
  Transmission Date: 20201103
  Serious: Yes (Disabling, Other)
  Sender: FDA-Public Use
  Company Number: FI-SHILPA MEDICARE LIMITED-SML-FI-2020-00291

PATIENT
  Age: 79 Year
  Sex: Female

DRUGS (6)
  1. CALCICHEW D3 FORTE SITRUUNA [Concomitant]
     Indication: OSTEOPOROSIS PROPHYLAXIS
     Dosage: 2 DF DAILY
     Route: 048
     Dates: start: 2010
  2. AZARGA [Concomitant]
     Active Substance: BRINZOLAMIDE\TIMOLOL MALEATE
     Indication: GLAUCOMA
     Dosage: 4 GTT DAILY
     Route: 047
     Dates: start: 2000
  3. MONOPROST [Concomitant]
     Active Substance: LATANOPROST
     Indication: GLAUCOMA
     Dosage: 2 GTT DAILY
     Route: 047
     Dates: start: 2000
  4. THYROXIN [Concomitant]
     Active Substance: LEVOTHYROXINE
     Indication: HYPOTHYROIDISM
     Dosage: 100 ?G DAILY
     Route: 048
     Dates: start: 1980
  5. CAPECITABINE, UNKNOWN [Suspect]
     Active Substance: CAPECITABINE
     Indication: BREAST CANCER METASTATIC
     Dosage: 1G DAILY
     Route: 048
     Dates: start: 20200228, end: 20200513
  6. PROLIA [Concomitant]
     Active Substance: DENOSUMAB
     Indication: METASTASES TO BONE
     Dosage: 120 MG YEARLY
     Route: 058
     Dates: start: 2018

REACTIONS (2)
  - Fall [Recovered/Resolved with Sequelae]
  - Balance disorder [Recovered/Resolved with Sequelae]

NARRATIVE: CASE EVENT DATE: 202004
